FAERS Safety Report 7824122-8 (Version None)
Quarter: 2011Q4

REPORT INFORMATION
  Report Type: 
  Country: None (occurrence: None)
  Receive Date: 20111019
  Receipt Date: 20111017
  Transmission Date: 20120403
  Serious: Yes (Hospitalization)
  Sender: FDA-Public Use
  Company Number: IE-AMGEN-IRLSP2011053403

PATIENT
  Age: 43 Year
  Sex: Female

DRUGS (5)
  1. NEULASTA [Suspect]
     Indication: CHEMOTHERAPY
     Dosage: 6 MG, Q3WK
     Route: 058
     Dates: start: 20110622
  2. DEXAMETHASONE [Concomitant]
  3. PANTOPRAZOLE [Concomitant]
  4. ANTINEOPLASTIC AGENTS [Concomitant]
  5. MOTILIUM                           /00498201/ [Concomitant]

REACTIONS (3)
  - THROAT TIGHTNESS [None]
  - DYSPNOEA [None]
  - BONE PAIN [None]
